FAERS Safety Report 10669151 (Version 1)
Quarter: 2014Q4

REPORT INFORMATION
  Report Type: Spontaneous
  Country: US (occurrence: US)
  Receive Date: 20141222
  Receipt Date: 20141222
  Transmission Date: 20150529
  Serious: No
  Sender: FDA-Public Use
  Company Number: US-BAUSCH-BL-2014-006309

PATIENT
  Age: 37 Year
  Sex: Male

DRUGS (2)
  1. XENAZINE [Suspect]
     Active Substance: TETRABENAZINE
     Route: 048
     Dates: start: 20140927
  2. XENAZINE [Suspect]
     Active Substance: TETRABENAZINE
     Indication: HUNTINGTON^S DISEASE
     Route: 048
     Dates: start: 20140920, end: 201409

REACTIONS (4)
  - Restlessness [Unknown]
  - Movement disorder [Unknown]
  - Insomnia [Unknown]
  - Feeling drunk [Unknown]

NARRATIVE: CASE EVENT DATE: 20140928
